FAERS Safety Report 11806250 (Version 1)
Quarter: 2015Q4

REPORT INFORMATION
  Report Type: Spontaneous
  Country: US (occurrence: US)
  Receive Date: 20151207
  Receipt Date: 20151207
  Transmission Date: 20160305
  Serious: No
  Sender: FDA-Public Use
  Company Number: US-ASTRAZENECA-2015SF22156

PATIENT
  Age: 1002 Month
  Sex: Male

DRUGS (14)
  1. PRILOSEC [Suspect]
     Active Substance: OMEPRAZOLE MAGNESIUM
     Dosage: TWICE A DAY, AT NIGHT
     Route: 048
  2. AMLODIPINE BESILATE [Concomitant]
     Active Substance: AMLODIPINE BESYLATE
     Indication: HYPERTENSION
     Dosage: 5MG ONE A DAY
  3. FINASTERIDE. [Concomitant]
     Active Substance: FINASTERIDE
     Dosage: 5MG ONCE A DAY
  4. NEXIUM 24HR [Suspect]
     Active Substance: ESOMEPRAZOLE MAGNESIUM
     Route: 048
  5. ESCITALOPRAM [Concomitant]
     Active Substance: ESCITALOPRAM OXALATE
     Indication: EMOTIONAL DISORDER
     Dosage: ONE 10MG TABLET A DAY
  6. IPRATROPIUM [Concomitant]
     Active Substance: IPRATROPIUM
     Dosage: SPRAY, AS NEEDED
  7. PRILOSEC [Suspect]
     Active Substance: OMEPRAZOLE MAGNESIUM
     Dosage: 1 PILL DAILY
     Route: 048
  8. ZETIA [Concomitant]
     Active Substance: EZETIMIBE
     Dosage: 10MG ONCE A DAY
  9. BENAZEPRIL [Concomitant]
     Active Substance: BENAZEPRIL HYDROCHLORIDE
     Dosage: 20MG ONE A DAY
  10. AMIODARONE [Concomitant]
     Active Substance: AMIODARONE
     Dosage: 200MG ONCE A DAY
  11. ATORVASTATIN [Concomitant]
     Active Substance: ATORVASTATIN
     Dosage: 10MG, ONE A DAY
  12. AMLODIPINE BESILATE [Concomitant]
     Active Substance: AMLODIPINE BESYLATE
     Indication: CARDIAC DISORDER
     Dosage: 5MG ONE A DAY
  13. JANTOVEN [Concomitant]
     Active Substance: WARFARIN SODIUM
     Indication: ANTICOAGULANT THERAPY
     Dosage: 5MG, ? PILL 6 DAYS A WEEK AND A WHOLE PILL ON FRIDAY
  14. TAMSULOSIN [Concomitant]
     Active Substance: TAMSULOSIN
     Dosage: ONE 4MG A DAY

REACTIONS (3)
  - Intentional product use issue [Unknown]
  - Abdominal discomfort [Unknown]
  - Off label use [Unknown]

NARRATIVE: CASE EVENT DATE: 201509
